FAERS Safety Report 25588363 (Version 1)
Quarter: 2025Q3

REPORT INFORMATION
  Report Type: Spontaneous
  Country: GB (occurrence: GB)
  Receive Date: 20250722
  Receipt Date: 20250722
  Transmission Date: 20251020
  Serious: Yes (Other)
  Sender: ACCORD
  Company Number: None

PATIENT
  Age: 18 Year
  Sex: Female
  Weight: 73 kg

DRUGS (1)
  1. AMITRIPTYLINE [Suspect]
     Active Substance: AMITRIPTYLINE
     Indication: Migraine
     Dates: start: 20241105, end: 202412

REACTIONS (2)
  - Depression [Recovered/Resolved]
  - Hypoaesthesia [Recovering/Resolving]

NARRATIVE: CASE EVENT DATE: 20241215
